FAERS Safety Report 13243544 (Version 4)
Quarter: 2017Q2

REPORT INFORMATION
  Report Type: Spontaneous
  Country: US (occurrence: US)
  Receive Date: 20170216
  Receipt Date: 20170404
  Transmission Date: 20170830
  Serious: No
  Sender: FDA-Public Use
  Company Number: US-B.I. PHARMACEUTICALS,INC./RIDGEFIELD-2017-BI-007832

PATIENT
  Age: 64 Year
  Sex: Female

DRUGS (2)
  1. XANAX [Concomitant]
     Active Substance: ALPRAZOLAM
     Indication: ANXIETY
     Dosage: QID;  FORM STRENGTH: 0.25MG
     Route: 048
     Dates: start: 2014
  2. CATAPRES [Suspect]
     Active Substance: CLONIDINE HYDROCHLORIDE
     Indication: ARRHYTHMIA
     Dosage: FORM STRENGTH: 0.1 MG; FORMULATION: TABLET? ADMINISTRATION CORRECT? NR(NOT REPORTED) ?ACTION(S) TAKE
     Route: 048
     Dates: start: 20161003, end: 20170205

REACTIONS (18)
  - Abdominal pain upper [Recovered/Resolved]
  - Back pain [Not Recovered/Not Resolved]
  - Delusion [Unknown]
  - Aggression [Recovered/Resolved]
  - Irritability [Recovered/Resolved]
  - Paraesthesia [Not Recovered/Not Resolved]
  - Hallucination, auditory [Unknown]
  - Nausea [Unknown]
  - Off label use [Unknown]
  - Hallucination, visual [Recovered/Resolved]
  - Anxiety [Recovered/Resolved]
  - Vomiting [Recovered/Resolved]
  - Personality change [Not Recovered/Not Resolved]
  - Fall [Not Recovered/Not Resolved]
  - Sensory loss [Not Recovered/Not Resolved]
  - Confusional state [Recovered/Resolved]
  - Drug prescribing error [Unknown]
  - Tremor [Recovered/Resolved]

NARRATIVE: CASE EVENT DATE: 20161004
